FAERS Safety Report 15612457 (Version 1)
Quarter: 2018Q4

REPORT INFORMATION
  Report Type: Spontaneous
  Country: JP (occurrence: JP)
  Receive Date: 20181113
  Receipt Date: 20181113
  Transmission Date: 20190205
  Serious: Yes (Hospitalization, Other)
  Sender: FDA-Public Use
  Company Number: JP-MYLANLABS-2018M1084806

PATIENT
  Age: 44 Year
  Sex: Female

DRUGS (19)
  1. LEVETIRACETAM. [Suspect]
     Active Substance: LEVETIRACETAM
     Indication: PARTIAL SEIZURES
     Route: 065
  2. RAMELTEON [Suspect]
     Active Substance: RAMELTEON
     Indication: LIMBIC ENCEPHALITIS
     Route: 065
  3. BROTIZOLAM [Suspect]
     Active Substance: BROTIZOLAM
     Indication: LIMBIC ENCEPHALITIS
     Route: 065
  4. AMPICILLIN/SULBACTAM [Suspect]
     Active Substance: AMPICILLIN SODIUM\SULBACTAM SODIUM
     Indication: LIMBIC ENCEPHALITIS
     Dosage: STARTED ON DAY 1
     Route: 065
  5. EDOXABAN [Suspect]
     Active Substance: EDOXABAN TOSYLATE
     Indication: LIMBIC ENCEPHALITIS
     Route: 065
  6. METHYLPREDNISOLONE. [Suspect]
     Active Substance: METHYLPREDNISOLONE
     Indication: LIMBIC ENCEPHALITIS
     Dosage: PULSE THERAPY; 1 G/DAY FOR 3 DAYS, EVERY WEEK, FOR 4 TIMES
     Route: 065
  7. ACICLOVIR [Suspect]
     Active Substance: ACYCLOVIR
     Indication: VARICELLA ZOSTER VIRUS INFECTION
  8. PROPOFOL. [Suspect]
     Active Substance: PROPOFOL
     Indication: ADAPTIVE SERVO-VENTILATION
     Dosage: 100-150 MG/H; STARTED ON DAY 1
     Route: 065
  9. DEXMEDETOMIDINE. [Suspect]
     Active Substance: DEXMEDETOMIDINE
     Indication: LIMBIC ENCEPHALITIS
     Dosage: 0.5-0.7MICROG/KG/H
     Route: 065
  10. QUETIAPINE. [Suspect]
     Active Substance: QUETIAPINE
     Indication: LIMBIC ENCEPHALITIS
     Dosage: 12.5-25 MG/DAY
     Route: 065
  11. LACOSAMIDE. [Suspect]
     Active Substance: LACOSAMIDE
     Indication: PARTIAL SEIZURES
     Route: 065
  12. FENTANYL. [Suspect]
     Active Substance: FENTANYL
     Indication: LIMBIC ENCEPHALITIS
     Dosage: 0.07 MG/H
     Route: 065
  13. IMMUNOGLOBULIN                     /00025201/ [Suspect]
     Active Substance: HUMAN IMMUNOGLOBULIN G
     Indication: LIMBIC ENCEPHALITIS
     Dosage: 0.4 G/KG/DAY FOR 5 DAYS; STARTED ON DAY 4
     Route: 042
  14. MOSAPRIDE [Suspect]
     Active Substance: MOSAPRIDE
     Indication: LIMBIC ENCEPHALITIS
     Route: 065
  15. SUVOREXANT. [Suspect]
     Active Substance: SUVOREXANT
     Indication: LIMBIC ENCEPHALITIS
     Route: 065
  16. LOXOPROFEN [Suspect]
     Active Substance: LOXOPROFEN
     Indication: LIMBIC ENCEPHALITIS
     Route: 065
  17. ESOMEPRAZOLE. [Suspect]
     Active Substance: ESOMEPRAZOLE MAGNESIUM
     Indication: LIMBIC ENCEPHALITIS
     Route: 065
  18. ACICLOVIR [Suspect]
     Active Substance: ACYCLOVIR
     Indication: HERPES SIMPLEX
     Dosage: STARTED ON DAY 1
     Route: 065
  19. HALOPERIDOL. [Suspect]
     Active Substance: HALOPERIDOL
     Indication: LIMBIC ENCEPHALITIS
     Dosage: 5-10 MG/DAY
     Route: 065

REACTIONS (1)
  - Toxic epidermal necrolysis [Recovered/Resolved]
